FAERS Safety Report 6402421-4 (Version None)
Quarter: 2009Q4

REPORT INFORMATION
  Report Type: 
  Country: None (occurrence: None)
  Receive Date: 20091015
  Receipt Date: 20091007
  Transmission Date: 20100525
  Serious: Yes (Other)
  Sender: FDA-Public Use
  Company Number: DE-ABBOTT-09P-062-0601186-00

PATIENT
  Age: 16 Year
  Sex: Male

DRUGS (1)
  1. ERGENYL TABLET [Suspect]
     Indication: DRUG USE FOR UNKNOWN INDICATION
     Route: 048
     Dates: start: 20050601

REACTIONS (2)
  - PANCREATIC DISORDER [None]
  - TYPE 1 DIABETES MELLITUS [None]
